FAERS Safety Report 16978818 (Version 1)
Quarter: 2019Q4

REPORT INFORMATION
  Report Type: Spontaneous
  Country: US (occurrence: US)
  Receive Date: 20191029
  Receipt Date: 20191029
  Transmission Date: 20200122
  Serious: Yes (Other)
  Sender: FDA-Public Use
  Company Number: None

PATIENT
  Age: 11 Year
  Sex: Female
  Weight: 50.4 kg

DRUGS (1)
  1. LUPRON [Suspect]
     Active Substance: LEUPROLIDE ACETATE
     Indication: PRECOCIOUS PUBERTY
     Dosage: 30 MG INTRAMUSCULAR EVERY 12 WEEKS
     Route: 030
     Dates: start: 20180921, end: 20190715

REACTIONS (1)
  - Suicidal ideation [None]

NARRATIVE: CASE EVENT DATE: 20191029
